FAERS Safety Report 8294354-6 (Version None)
Quarter: 2012Q2

REPORT INFORMATION
  Report Type: 
  Country: None (occurrence: None)
  Receive Date: 20120413
  Receipt Date: 20120330
  Transmission Date: 20120825
  Serious: Yes (Other)
  Sender: FDA-Public Use
  Company Number: 2012-00544

PATIENT
  Age: 85 Year
  Sex: Female
  Weight: 58.9676 kg

DRUGS (3)
  1. CLOPIDOGREL (PLAVIX) (TABLETS) [Concomitant]
  2. LISINOPRIL [Suspect]
     Indication: HYPERTENSION
     Dosage: 40 MG (40 MG, 1 IN 1 D), PER ORAL
     Route: 048
     Dates: start: 20120215
  3. CARVEDILOL [Concomitant]

REACTIONS (6)
  - HEADACHE [None]
  - HYPERHIDROSIS [None]
  - DRUG INEFFECTIVE [None]
  - LIP SWELLING [None]
  - HYPERTENSION [None]
  - MALAISE [None]
